FAERS Safety Report 22808817 (Version 6)
Quarter: 2024Q2

REPORT INFORMATION
  Report Type: Spontaneous
  Country: CA (occurrence: CA)
  Receive Date: 20230810
  Receipt Date: 20240519
  Transmission Date: 20240716
  Serious: Yes (Other)
  Sender: FDA-Public Use
  Company Number: CA-PFIZER INC-202101401921

PATIENT
  Age: 43 Year
  Sex: Female

DRUGS (11)
  1. RUXIENCE [Suspect]
     Active Substance: RITUXIMAB-PVVR
     Indication: Myasthenia gravis
     Dosage: 1 G 2 DOSES 2 WEEK APART
     Route: 042
     Dates: start: 20211116, end: 20211203
  2. RUXIENCE [Suspect]
     Active Substance: RITUXIMAB-PVVR
     Dosage: 1000 MG, DAY 1 AND DAY 15 INFUSION
     Route: 042
     Dates: start: 20230624, end: 20230803
  3. RUXIENCE [Suspect]
     Active Substance: RITUXIMAB-PVVR
     Dosage: 1000 MG, DAY 1 AND DAY 15 INFUSION
     Route: 042
     Dates: start: 20230803, end: 20230818
  4. RUXIENCE [Suspect]
     Active Substance: RITUXIMAB-PVVR
     Dosage: 1000 MG, DAY 1 AND DAY 15 INFUSION
     Route: 042
     Dates: start: 20240320, end: 20240403
  5. BENADRYL [Concomitant]
     Active Substance: DIPHENHYDRAMINE HYDROCHLORIDE
     Indication: Pruritus
     Dosage: 50 MG
     Dates: start: 20230803, end: 20230803
  6. BENADRYL [Concomitant]
     Active Substance: DIPHENHYDRAMINE HYDROCHLORIDE
     Indication: Oropharyngeal discomfort
  7. BENADRYL [Concomitant]
     Active Substance: DIPHENHYDRAMINE HYDROCHLORIDE
     Indication: Muscle spasms
  8. CANDESARTAN [Concomitant]
     Active Substance: CANDESARTAN
     Dosage: UNK, ON HOLD
  9. SOLU-CORTEF [Concomitant]
     Active Substance: HYDROCORTISONE SODIUM SUCCINATE
     Indication: Pruritus
     Dosage: 100 MG
     Dates: start: 20230803, end: 20230803
  10. SOLU-CORTEF [Concomitant]
     Active Substance: HYDROCORTISONE SODIUM SUCCINATE
     Indication: Oropharyngeal discomfort
  11. SOLU-CORTEF [Concomitant]
     Active Substance: HYDROCORTISONE SODIUM SUCCINATE
     Indication: Muscle spasms

REACTIONS (9)
  - Pruritus [Recovered/Resolved]
  - Oropharyngeal discomfort [Recovered/Resolved]
  - Muscle spasms [Recovered/Resolved]
  - Off label use [Unknown]
  - Condition aggravated [Unknown]
  - Dysphonia [Unknown]
  - Dysphagia [Unknown]
  - Disturbance in attention [Unknown]
  - Speech disorder [Unknown]

NARRATIVE: CASE EVENT DATE: 20230803
